FAERS Safety Report 9140232 (Version 2)
Quarter: 2013Q1

REPORT INFORMATION
  Report Type: Spontaneous
  Country: GB (occurrence: US)
  Receive Date: 20130305
  Receipt Date: 20130311
  Transmission Date: 20140127
  Serious: Yes (Hospitalization, Other)
  Sender: FDA-Public Use
  Company Number: US-PFIZER INC-2013073333

PATIENT
  Age: 18 Year
  Sex: Female

DRUGS (4)
  1. PHENYTOIN [Suspect]
     Indication: SUICIDE ATTEMPT
     Dosage: 215 CAPSULES EACH CONTAINING 100 MG
  2. PHENYTOIN [Suspect]
     Indication: CONVULSION
  3. PHENOBARBITONE [Suspect]
     Indication: SUICIDE ATTEMPT
     Dosage: 75 TABLETS EACH CONTAINING 32 MG
  4. PHENOBARBITONE [Suspect]
     Indication: CONVULSION

REACTIONS (9)
  - Overdose [Recovering/Resolving]
  - Toxicity to various agents [Recovering/Resolving]
  - Suicide attempt [Recovering/Resolving]
  - Coma [Recovered/Resolved]
  - Mental impairment [Unknown]
  - Brain injury [Unknown]
  - Convulsion [Unknown]
  - Hepatic function abnormal [Recovered/Resolved]
  - Agitated depression [Unknown]
